FAERS Safety Report 4720661-7 (Version None)
Quarter: 2005Q3

REPORT INFORMATION
  Report Type: 
  Country: None (occurrence: None)
  Receive Date: 20050719
  Receipt Date: 20050708
  Transmission Date: 20060218
  Serious: Yes (Hospitalization, Other)
  Sender: FDA-Public Use
  Company Number: KII-2005-0017438

PATIENT
  Age: 59 Year
  Sex: Female

DRUGS (2)
  1. OXYCONTIN [Suspect]
     Indication: DRUG USE FOR UNKNOWN INDICATION
     Dosage: ORAL
     Route: 048
  2. ANTIBIOTICS [Concomitant]

REACTIONS (11)
  - BODY TEMPERATURE INCREASED [None]
  - INTENTIONAL MISUSE [None]
  - LUNG DISORDER [None]
  - LUNG INFILTRATION [None]
  - OEDEMA [None]
  - OVERDOSE [None]
  - OXYGEN SATURATION DECREASED [None]
  - PULMONARY OEDEMA [None]
  - RESPIRATORY DISTRESS [None]
  - RESPIRATORY RATE INCREASED [None]
  - SUICIDE ATTEMPT [None]
